FAERS Safety Report 4590306-8 (Version None)
Quarter: 2005Q1

REPORT INFORMATION
  Report Type: 
  Country: None (occurrence: None)
  Receive Date: 20050224
  Receipt Date: 20050216
  Transmission Date: 20050727
  Serious: Yes (Hospitalization)
  Sender: FDA-Public Use
  Company Number: PHRM2005FR00842

PATIENT
  Age: 57 Year
  Sex: Male

DRUGS (4)
  1. NISIS [Suspect]
     Dosage: 80 MG, QD
     Route: 048
     Dates: start: 20041220, end: 20050103
  2. ESIDRIX [Concomitant]
     Indication: OEDEMA
     Route: 048
     Dates: start: 20041220
  3. LASILIX [Concomitant]
     Indication: OEDEMA
     Dosage: 60 MG/DAY
     Route: 065
     Dates: start: 20041220
  4. EQUANIL [Concomitant]
     Dosage: 400 MG/DAY
     Route: 048

REACTIONS (4)
  - HAEMOGLOBIN DECREASED [None]
  - MALAISE [None]
  - NORMOCHROMIC NORMOCYTIC ANAEMIA [None]
  - OEDEMA [None]
